FAERS Safety Report 8572279-6 (Version None)
Quarter: 2012Q3

REPORT INFORMATION
  Report Type: 
  Country: None (occurrence: None)
  Receive Date: 20120806
  Receipt Date: 20120801
  Transmission Date: 20120928
  Serious: No
  Sender: FDA-Public Use
  Company Number: US-PFIZER INC-2012187967

PATIENT
  Sex: Female

DRUGS (6)
  1. PLAVIX [Suspect]
     Dosage: UNK
     Dates: end: 20120601
  2. CLOPIDOGREL [Suspect]
     Dosage: UNK
     Dates: start: 20120601, end: 20120601
  3. ATORVASTATIN [Suspect]
     Indication: CARDIAC OPERATION
  4. LIPITOR [Suspect]
     Indication: CARDIAC OPERATION
  5. LIPITOR [Suspect]
     Indication: BLOOD CHOLESTEROL INCREASED
     Dosage: 40 MG, 1X/DAY
     Route: 048
     Dates: start: 20050501, end: 20111201
  6. ATORVASTATIN [Suspect]
     Indication: BLOOD CHOLESTEROL INCREASED
     Dosage: 40 MG, 1X/DAY
     Route: 048
     Dates: start: 20111201, end: 20120701

REACTIONS (7)
  - POLLAKIURIA [None]
  - MUSCLE DISORDER [None]
  - SCREAMING [None]
  - DRY MOUTH [None]
  - NIGHTMARE [None]
  - PALPITATIONS [None]
  - LIMB DISCOMFORT [None]
